FAERS Safety Report 12446986 (Version 1)
Quarter: 2016Q2

REPORT INFORMATION
  Report Type: Spontaneous
  Country: US (occurrence: None)
  Receive Date: 20160607
  Receipt Date: 20160607
  Transmission Date: 20160815
  Serious: Yes (Life-Threatening, Hospitalization, Other)
  Sender: FDA-Public Use
  Company Number: None

PATIENT
  Age: 75 Year
  Sex: Male
  Weight: 127.01 kg

DRUGS (14)
  1. DIOVAN [Concomitant]
     Active Substance: VALSARTAN
  2. XOPENEX [Concomitant]
     Active Substance: LEVALBUTEROL HYDROCHLORIDE
  3. ALBUTEROL. [Concomitant]
     Active Substance: ALBUTEROL
  4. IMDUR [Concomitant]
     Active Substance: ISOSORBIDE MONONITRATE
  5. COREG [Concomitant]
     Active Substance: CARVEDILOL
  6. LASIX [Concomitant]
     Active Substance: FUROSEMIDE
  7. LANTUS [Concomitant]
     Active Substance: INSULIN GLARGINE
  8. ASA [Concomitant]
     Active Substance: ASPIRIN
  9. METOLAZONE. [Concomitant]
     Active Substance: METOLAZONE
  10. NOVOLOG [Concomitant]
     Active Substance: INSULIN ASPART
  11. WARFARIN [Concomitant]
     Active Substance: WARFARIN
  12. LIPITOR [Concomitant]
     Active Substance: ATORVASTATIN CALCIUM
  13. VALSARTAN 160 MG GENERIC FOR DIOVAN 160 MG TAB [Suspect]
     Active Substance: VALSARTAN
     Indication: HYPERTENSION
     Dosage: 1 PILL PER DAY 1 PILL EVENING MOUTH
     Route: 048
  14. ALLOPURINOL. [Concomitant]
     Active Substance: ALLOPURINOL

REACTIONS (3)
  - Cough [None]
  - Blood pressure decreased [None]
  - Epilepsy [None]
